FAERS Safety Report 17527006 (Version 3)
Quarter: 2020Q3

REPORT INFORMATION
  Report Type: Spontaneous
  Country: US (occurrence: US)
  Receive Date: 20200311
  Receipt Date: 20200921
  Transmission Date: 20201102
  Serious: No
  Sender: FDA-Public Use
  Company Number: US-TEVA-2020-US-1198153

PATIENT
  Age: 70 Year
  Sex: Female

DRUGS (14)
  1. VESICARE [Concomitant]
     Active Substance: SOLIFENACIN SUCCINATE
  2. COPAXONE [Suspect]
     Active Substance: GLATIRAMER ACETATE
     Indication: MULTIPLE SCLEROSIS
     Dosage: 3 TIMES PER WEEK
     Route: 058
     Dates: start: 20180305
  3. FOLIC ACID. [Concomitant]
     Active Substance: FOLIC ACID
  4. LUTEIN [Concomitant]
     Active Substance: LUTEIN
  5. PRILOSEC [Concomitant]
     Active Substance: OMEPRAZOLE MAGNESIUM
  6. TIZANIDINE. [Concomitant]
     Active Substance: TIZANIDINE
  7. VITAMIN B12 [Concomitant]
     Active Substance: CYANOCOBALAMIN
  8. ZINC. [Concomitant]
     Active Substance: ZINC
  9. VITAMIN D3 [Concomitant]
     Active Substance: CHOLECALCIFEROL
  10. AMLODIPINE [Concomitant]
     Active Substance: AMLODIPINE BESYLATE
  11. GABAPENTIN. [Concomitant]
     Active Substance: GABAPENTIN
  12. DALFAMPRIDINE. [Concomitant]
     Active Substance: DALFAMPRIDINE
  13. COQ 10 [Concomitant]
     Active Substance: UBIDECARENONE
  14. LEXAPRO [Concomitant]
     Active Substance: ESCITALOPRAM OXALATE

REACTIONS (4)
  - Fatigue [Unknown]
  - Vertigo [Unknown]
  - Urinary tract infection [Unknown]
  - Depression [Unknown]
